FAERS Safety Report 13759174 (Version 2)
Quarter: 2017Q4

REPORT INFORMATION
  Report Type: Spontaneous
  Country: GB (occurrence: GB)
  Receive Date: 20170717
  Receipt Date: 20171111
  Transmission Date: 20180320
  Serious: Yes (Other)
  Sender: FDA-Public Use
  Company Number: GB-IPSEN BIOPHARMACEUTICALS, INC.-2017-07276

PATIENT
  Sex: Male

DRUGS (1)
  1. SOMATULINE AUTOGEL [Suspect]
     Active Substance: LANREOTIDE ACETATE
     Indication: CARCINOID SYNDROME
     Dosage: NOT REPORTED
     Route: 058
     Dates: start: 20101209

REACTIONS (15)
  - Arthralgia [Unknown]
  - Fatigue [Recovered/Resolved]
  - Osteoporosis [Unknown]
  - Pruritus [Unknown]
  - Injection site granuloma [Recovering/Resolving]
  - Steatorrhoea [Unknown]
  - Wrong technique in product usage process [Unknown]
  - Malabsorption [Unknown]
  - Mineral deficiency [Unknown]
  - Hypovitaminosis [Unknown]
  - Thyroid mass [Unknown]
  - Injection site pain [Recovered/Resolved]
  - Injection site pruritus [Recovered/Resolved]
  - Bone density decreased [Unknown]
  - Alopecia [Unknown]
